FAERS Safety Report 7887698-0 (Version None)
Quarter: 2011Q4

REPORT INFORMATION
  Report Type: 
  Country: None (occurrence: None)
  Receive Date: 20111103
  Receipt Date: 20111027
  Transmission Date: 20120403
  Serious: No
  Sender: FDA-Public Use
  Company Number: US-BIOGENIDEC-2011BI040908

PATIENT
  Sex: Female

DRUGS (5)
  1. AVONEX [Suspect]
     Route: 030
     Dates: start: 19980101, end: 20030101
  2. VITAMINS (NOS) [Concomitant]
     Indication: PRODUCT USED FOR UNKNOWN INDICATION
  3. AVONEX [Suspect]
     Route: 030
     Dates: start: 19960101, end: 19970101
  4. AVONEX [Suspect]
     Indication: MULTIPLE SCLEROSIS
     Route: 030
     Dates: start: 20030101
  5. XANAX [Concomitant]
     Indication: NERVOUSNESS
     Route: 048

REACTIONS (5)
  - FEELING ABNORMAL [None]
  - LIVER FUNCTION TEST ABNORMAL [None]
  - PAIN [None]
  - ABDOMINAL HERNIA [None]
  - MALAISE [None]
